FAERS Safety Report 4981087-4 (Version None)
Quarter: 2006Q2

REPORT INFORMATION
  Report Type: 
  Country: None (occurrence: None)
  Receive Date: 20060418
  Receipt Date: 20060404
  Transmission Date: 20061013
  Serious: Yes (Death)
  Sender: FDA-Public Use
  Company Number: CLOF-10219

PATIENT
  Age: 71 Year
  Sex: Female

DRUGS (4)
  1. CLOLAR [Suspect]
     Indication: ACUTE MYELOID LEUKAEMIA
     Dosage: 30 MG/M2 QD X 5 IV
     Route: 042
  2. LEVAQUIN [Concomitant]
  3. VALACYCLOVIR [Concomitant]
  4. ITRACONAZOLE [Concomitant]

REACTIONS (1)
  - ESCHERICHIA SEPSIS [None]
